FAERS Safety Report 9093919 (Version 1)
Quarter: 2013Q1

REPORT INFORMATION
  Report Type: Spontaneous
  Country: US (occurrence: None)
  Receive Date: 20130214
  Receipt Date: 20130214
  Transmission Date: 20140127
  Serious: No
  Sender: FDA-Public Use
  Company Number: None

PATIENT
  Age: 67 Year
  Sex: Female

DRUGS (1)
  1. ZAVESCA [Suspect]

REACTIONS (3)
  - Weight decreased [None]
  - Gastrointestinal disorder [None]
  - Flatulence [None]
